FAERS Safety Report 22201226 (Version 2)
Quarter: 2023Q2

REPORT INFORMATION
  Report Type: Spontaneous
  Country: BE (occurrence: BE)
  Receive Date: 20230412
  Receipt Date: 20230418
  Transmission Date: 20230722
  Serious: Yes (Death, Hospitalization)
  Sender: FDA-Public Use
  Company Number: BE-INCYTE CORPORATION-2023IN003151

PATIENT
  Age: 68 Year
  Sex: Male
  Weight: 76 kg

DRUGS (3)
  1. LENALIDOMIDE [Suspect]
     Active Substance: LENALIDOMIDE
     Indication: Diffuse large B-cell lymphoma
     Dosage: 25 MILLIGRAM, ONCE A DAY
     Route: 048
     Dates: start: 20230207, end: 20230227
  2. TAFASITAMAB [Suspect]
     Active Substance: TAFASITAMAB
     Indication: Diffuse large B-cell lymphoma
     Dosage: 12 MILLIGRAM/KILOGRAM WEEKLY
     Route: 042
     Dates: start: 20230207, end: 20230228
  3. TAFASITAMAB [Suspect]
     Active Substance: TAFASITAMAB
     Dosage: 48(MG/KG) MILLIGRAM/KILOGRAM

REACTIONS (2)
  - Disease progression [Fatal]
  - COVID-19 [Fatal]

NARRATIVE: CASE EVENT DATE: 20230228
